FAERS Safety Report 8770501 (Version 1)
Quarter: 2012Q4

REPORT INFORMATION
  Report Type: 
  Country: GB (occurrence: GB)
  Receive Date: 20120906
  Receipt Date: 20120906
  Transmission Date: 20130627
  Serious: Yes (Other)
  Sender: FDA-Public Use
  Company Number: GB-PFIZER INC-2012217051

PATIENT
  Sex: Female

DRUGS (2)
  1. VENLAFAXINE HYDROCHLORIDE [Suspect]
     Dosage: 375 mg, UNK
  2. VENLAFAXINE HYDROCHLORIDE [Suspect]
     Dosage: 225 mg, UNK

REACTIONS (5)
  - Suicidal ideation [Recovered/Resolved]
  - Crying [Recovered/Resolved]
  - Thinking abnormal [Recovered/Resolved]
  - Decreased interest [Recovered/Resolved]
  - Feeling of despair [Unknown]
